FAERS Safety Report 9764242 (Version 1)
Quarter: 2013Q4

REPORT INFORMATION
  Report Type: Spontaneous
  Country: US (occurrence: US)
  Receive Date: 20131216
  Receipt Date: 20131216
  Transmission Date: 20140711
  Serious: Yes (Other)
  Sender: FDA-Public Use
  Company Number: US-ROCHE-1319432

PATIENT
  Age: 76 Year
  Sex: Male

DRUGS (2)
  1. ZELBORAF [Suspect]
     Indication: MALIGNANT MELANOMA
     Route: 065
     Dates: start: 201202
  2. COBIMETINIB [Suspect]
     Indication: MALIGNANT MELANOMA
     Route: 065

REACTIONS (2)
  - Chest pain [Recovered/Resolved]
  - Myocardial infarction [Recovering/Resolving]
